FAERS Safety Report 10874227 (Version 1)
Quarter: 2015Q1

REPORT INFORMATION
  Report Type: Spontaneous
  Country: GB (occurrence: GB)
  Receive Date: 20150227
  Receipt Date: 20150227
  Transmission Date: 20150721
  Serious: Yes (Other)
  Sender: FDA-Public Use
  Company Number: GB-GLAXOSMITHKLINE-A1039359A

PATIENT
  Sex: Female

DRUGS (4)
  1. NICORETTE [Suspect]
     Active Substance: NICOTINE
     Route: 065
  2. NICORETTE [Suspect]
     Active Substance: NICOTINE
     Route: 065
  3. NICORETTE [Suspect]
     Active Substance: NICOTINE
     Indication: SMOKING CESSATION THERAPY
     Route: 065
  4. NICORETTE [Suspect]
     Active Substance: NICOTINE
     Dosage: 4 MG, UNK
     Route: 065

REACTIONS (5)
  - Nicotine dependence [Not Recovered/Not Resolved]
  - Tooth loss [Unknown]
  - Alopecia [Unknown]
  - Periodontal disease [Unknown]
  - Intentional product use issue [Not Recovered/Not Resolved]
